FAERS Safety Report 10229697 (Version 1)
Quarter: 2014Q2

REPORT INFORMATION
  Report Type: Spontaneous
  Country: DE (occurrence: DE)
  Receive Date: 20140611
  Receipt Date: 20140611
  Transmission Date: 20141212
  Serious: Yes (Hospitalization)
  Sender: FDA-Public Use
  Company Number: PHHY2014DE069749

PATIENT
  Age: 37 Year
  Sex: Male

DRUGS (21)
  1. LEPONEX [Suspect]
     Dosage: 12.5 MG, DAILY
     Route: 048
     Dates: start: 20130822, end: 20130822
  2. LEPONEX [Suspect]
     Dosage: 25 MG
     Route: 048
     Dates: start: 20130823
  3. LEPONEX [Suspect]
     Dosage: 50 MG
     Route: 048
     Dates: start: 20130824
  4. LEPONEX [Suspect]
     Dosage: 100 MG
     Route: 048
     Dates: start: 20130825
  5. LEPONEX [Suspect]
     Dosage: 150 MG
     Route: 048
     Dates: start: 20130826, end: 20130828
  6. LEPONEX [Suspect]
     Dosage: 200 MG
     Route: 048
     Dates: start: 20130829, end: 20130904
  7. LEPONEX [Suspect]
     Dosage: 250 MG
     Route: 048
     Dates: start: 20130905, end: 20130909
  8. TAVOR [Concomitant]
     Dosage: BIS 4 MG
     Route: 048
     Dates: start: 20130607, end: 20130814
  9. TAVOR [Concomitant]
     Dosage: 3 MG
     Route: 048
     Dates: start: 20130815, end: 20130820
  10. TAVOR [Concomitant]
     Dosage: 2.5 MG
     Route: 048
     Dates: start: 20130821, end: 20130826
  11. TAVOR [Concomitant]
     Dosage: 2 MG
     Route: 048
     Dates: start: 20130827, end: 20130904
  12. TAVOR [Concomitant]
     Dosage: 1 MG
     Route: 048
     Dates: start: 20130905, end: 20130908
  13. TAVOR [Concomitant]
     Dosage: 3 MG
     Route: 048
     Dates: start: 20130909
  14. TAVOR [Concomitant]
     Dosage: 5 MG
     Route: 048
     Dates: start: 20130910, end: 20130915
  15. TAVOR [Concomitant]
     Dosage: 4 MG
     Route: 048
     Dates: start: 20130917
  16. ATOSIL [Concomitant]
     Dosage: 100 MG
     Route: 048
     Dates: start: 20130816, end: 20130822
  17. ATOSIL [Concomitant]
     Dosage: 75 MG
     Route: 048
     Dates: start: 20130823
  18. ATOSIL [Concomitant]
     Dosage: 50 MG
     Route: 048
     Dates: start: 20130824, end: 20130828
  19. ATOSIL [Concomitant]
     Dosage: 25 MG
     Route: 048
     Dates: start: 20130829
  20. PANTOZOL [Concomitant]
     Dosage: 40 MG
     Route: 048
     Dates: start: 20130419
  21. MACROGOL [Concomitant]
     Dosage: 1 DF
     Route: 048
     Dates: start: 20130710

REACTIONS (2)
  - Pericarditis [Recovering/Resolving]
  - Myocarditis [Recovering/Resolving]
